FAERS Safety Report 10210942 (Version 1)
Quarter: 2014Q2

REPORT INFORMATION
  Report Type: Report from Study
  Country: JP (occurrence: JP)
  Receive Date: 20140602
  Receipt Date: 20140602
  Transmission Date: 20141212
  Serious: Yes (Hospitalization, Other)
  Sender: FDA-Public Use
  Company Number: JP-AMGEN INC.-JPNCT2014040125

PATIENT
  Age: 73 Year
  Sex: Male
  Weight: 72 kg

DRUGS (14)
  1. ROMIPLOSTIM - KHK [Suspect]
     Indication: IMMUNE THROMBOCYTOPENIC PURPURA
     Dosage: 1 MG/KG, Q2WK
     Route: 058
     Dates: start: 20110805
  2. PREDONINE                          /00016201/ [Concomitant]
     Indication: IMMUNE THROMBOCYTOPENIC PURPURA
     Dosage: 50 MG, UNK
     Route: 048
     Dates: start: 20110714
  3. ALLORIN [Concomitant]
     Indication: HYPERURICAEMIA
     Dosage: UNK
     Route: 048
  4. MADOPAR [Concomitant]
     Indication: PARKINSON^S DISEASE
     Dosage: UNK
     Route: 048
  5. PARIET [Concomitant]
     Indication: PROPHYLAXIS
     Dosage: UNK
     Route: 048
  6. LENDEM [Concomitant]
     Indication: INSOMNIA
     Dosage: UNK
     Route: 048
  7. BONALON [Concomitant]
     Indication: PROPHYLAXIS
     Dosage: UNK
     Route: 048
  8. MICARDIS [Concomitant]
     Indication: HYPERTENSION
     Dosage: 40 MG, UNK
     Route: 048
  9. TERMISIL [Concomitant]
     Indication: CONSTIPATION
     Dosage: UNK
     Route: 048
  10. LECICARBON                         /00739901/ [Concomitant]
     Indication: CONSTIPATION
     Dosage: UNK
     Route: 054
  11. MAGMITT [Concomitant]
     Indication: CONSTIPATION
     Dosage: UNK
     Route: 048
  12. PURSENNIDE                         /00571901/ [Concomitant]
     Indication: CONSTIPATION
     Dosage: UNK
     Route: 048
  13. WARFARIN [Concomitant]
     Indication: PROPHYLAXIS
     Dosage: UNK
     Route: 048
  14. CRESTOR [Concomitant]
     Indication: HYPERLIPIDAEMIA
     Dosage: UNK
     Route: 048

REACTIONS (7)
  - Deep vein thrombosis [Recovered/Resolved]
  - Pulmonary embolism [Recovered/Resolved]
  - Osteonecrosis [Recovering/Resolving]
  - Pharyngitis [Recovered/Resolved]
  - Dizziness [Recovered/Resolved]
  - Tinea pedis [Recovered/Resolved]
  - Constipation [Recovering/Resolving]
